FAERS Safety Report 5444504-1 (Version None)
Quarter: 2007Q3

REPORT INFORMATION
  Report Type: 
  Country: None (occurrence: None)
  Receive Date: 20070824
  Receipt Date: 20070712
  Transmission Date: 20080115
  Serious: Yes (Other)
  Sender: FDA-Public Use
  Company Number: CHNY2007GB02626

PATIENT
  Age: 42 Year
  Sex: Female

DRUGS (2)
  1. NICOTINE [Suspect]
     Indication: SMOKING CESSATION THERAPY
     Dosage: 4 MG, CHEWED ; 2 MG, 6 2 PIECES DAILY, CHEWABLE
     Dates: start: 20061201, end: 20070201
  2. NICOTINE [Suspect]
     Indication: SMOKING CESSATION THERAPY
     Dosage: 4 MG, CHEWED ; 2 MG, 6 2 PIECES DAILY, CHEWABLE
     Dates: start: 20070201, end: 20070701

REACTIONS (5)
  - APATHY [None]
  - DECREASED APPETITE [None]
  - DEPRESSED MOOD [None]
  - FATIGUE [None]
  - TREMOR [None]
